FAERS Safety Report 17200674 (Version 2)
Quarter: 2020Q2

REPORT INFORMATION
  Report Type: Spontaneous
  Country: PT (occurrence: PT)
  Receive Date: 20191226
  Receipt Date: 20200624
  Transmission Date: 20200713
  Serious: Yes (Life-Threatening, Hospitalization, Other)
  Sender: FDA-Public Use
  Company Number: PT-ACCORD-167417

PATIENT
  Age: 67 Year
  Sex: Female

DRUGS (4)
  1. SIMVASTATIN. [Suspect]
     Active Substance: SIMVASTATIN
     Indication: DYSLIPIDAEMIA
     Route: 048
     Dates: start: 2017, end: 2018
  2. CLARITHROMYCIN. [Interacting]
     Active Substance: CLARITHROMYCIN
     Indication: SKIN BACTERIAL INFECTION
     Dosage: IN JUNE
     Dates: start: 201806, end: 2018
  3. CIPROFLOXACIN. [Interacting]
     Active Substance: CIPROFLOXACIN
     Indication: SKIN BACTERIAL INFECTION
     Dosage: IN JUNE
     Dates: start: 201806, end: 2018
  4. SIMVASTATIN. [Interacting]
     Active Substance: SIMVASTATIN
     Indication: DYSLIPIDAEMIA
     Dosage: REINTRODUCED AND LATER SUSPENDED
     Route: 048
     Dates: start: 2018

REACTIONS (13)
  - Myalgia [Recovering/Resolving]
  - Oedema peripheral [Recovering/Resolving]
  - Rhabdomyolysis [Recovered/Resolved]
  - Quadriparesis [Recovering/Resolving]
  - Nausea [Recovered/Resolved]
  - Muscular weakness [Recovering/Resolving]
  - Hepatocellular injury [Recovered/Resolved]
  - Acute kidney injury [Recovered/Resolved]
  - Myositis [Unknown]
  - Myopathy [Recovering/Resolving]
  - Potentiating drug interaction [Unknown]
  - Mycobacterium chelonae infection [Unknown]
  - Diarrhoea [Recovered/Resolved]

NARRATIVE: CASE EVENT DATE: 2018
